FAERS Safety Report 9832253 (Version 1)
Quarter: 2014Q1

REPORT INFORMATION
  Report Type: Spontaneous
  Country: US (occurrence: US)
  Receive Date: 20140121
  Receipt Date: 20140121
  Transmission Date: 20141002
  Serious: No
  Sender: FDA-Public Use
  Company Number: US-PFIZER INC-2014016611

PATIENT
  Age: 83 Year
  Sex: Male
  Weight: 69.84 kg

DRUGS (9)
  1. LYRICA [Suspect]
     Indication: DIABETIC NEUROPATHY
     Dosage: 75 MG, 2X/DAY
     Route: 048
  2. LYRICA [Suspect]
     Dosage: 75 MG, 3X/DAY
     Route: 048
  3. LYRICA [Suspect]
     Dosage: 75 MG, UNK
     Route: 048
  4. TERAZOSIN [Concomitant]
     Dosage: 10 MG, 1X/DAY (BED TIME)
  5. PRIMIDONE [Concomitant]
     Dosage: 50 MG, 1X/DAY (AT EVENING)
  6. LANTUS [Concomitant]
     Dosage: 15 UNITS (IN THE MORNING),1X/DAY
  7. TRADJENTA [Concomitant]
     Dosage: 5 MG, 1X/DAY (AFTER LUNCH)
  8. LISINOPRIL W/HYDROCHLOROTHIAZIDE [Concomitant]
     Dosage: 10/12 MG/MG, UNK
  9. ASPIRIN [Concomitant]
     Dosage: 81 MG, 1X/DAY

REACTIONS (3)
  - Drug ineffective [Unknown]
  - Drug effect incomplete [Unknown]
  - Intentional drug misuse [Unknown]
